FAERS Safety Report 10630178 (Version 1)
Quarter: 2014Q4

REPORT INFORMATION
  Report Type: Spontaneous
  Country: US (occurrence: US)
  Receive Date: 20141205
  Receipt Date: 20141205
  Transmission Date: 20150529
  Serious: No
  Sender: FDA-Public Use
  Company Number: US-BRISTOL-MYERS SQUIBB COMPANY-21027255

PATIENT
  Age: 60 Year
  Sex: Male
  Weight: 126.98 kg

DRUGS (1)
  1. BYDUREON [Suspect]
     Active Substance: EXENATIDE
     Indication: TYPE 2 DIABETES MELLITUS
     Route: 058
     Dates: start: 20140409

REACTIONS (3)
  - Injection site pain [Unknown]
  - Underdose [Unknown]
  - Product quality issue [Unknown]
